FAERS Safety Report 5558405-1 (Version None)
Quarter: 2007Q4

REPORT INFORMATION
  Report Type: 
  Country: None (occurrence: None)
  Receive Date: 20071214
  Receipt Date: 20071002
  Transmission Date: 20080405
  Serious: No
  Sender: FDA-Public Use
  Company Number: US-ABBOTT-07P-163-0367354-00

PATIENT
  Sex: Female
  Weight: 58.112 kg

DRUGS (8)
  1. HUMIRA [Suspect]
     Indication: RHEUMATOID ARTHRITIS
  2. HUMIRA [Suspect]
     Dates: start: 20070701
  3. CELECOXIB [Concomitant]
     Indication: PAIN
  4. CELECOXIB [Concomitant]
     Indication: INFLAMMATION
  5. BELLADONA [Concomitant]
     Indication: IRRITABLE BOWEL SYNDROME
  6. ESOMEPRAZOLE MAGNESIUM [Concomitant]
     Indication: DRUG USE FOR UNKNOWN INDICATION
  7. ANTIDEPRESSANTS [Concomitant]
     Indication: DRUG USE FOR UNKNOWN INDICATION
  8. HIGH CHOLESTEROL MEDICATION [Concomitant]
     Indication: DRUG USE FOR UNKNOWN INDICATION

REACTIONS (4)
  - ARTHRALGIA [None]
  - ARTHRITIS [None]
  - DRUG INEFFECTIVE [None]
  - UNDERDOSE [None]
